FAERS Safety Report 5118260-0 (Version None)
Quarter: 2006Q4

REPORT INFORMATION
  Report Type: 
  Country: None (occurrence: None)
  Receive Date: 20061002
  Receipt Date: 20060724
  Transmission Date: 20070319
  Serious: No
  Sender: FDA-Public Use
  Company Number: US-BRISTOL-MYERS SQUIBB COMPANY-13451083

PATIENT
  Age: 72 Year
  Sex: Female
  Weight: 44 kg

DRUGS (11)
  1. ORENCIA [Suspect]
     Indication: RHEUMATOID ARTHRITIS
     Route: 042
     Dates: start: 20060713
  2. VIVELLE [Concomitant]
  3. AREDIA [Concomitant]
  4. ADVAIR DISKUS 100/50 [Concomitant]
  5. FOLIC ACID [Concomitant]
  6. CELEBREX [Concomitant]
  7. XANAX [Concomitant]
  8. ASCORBIC ACID [Concomitant]
  9. CITRACAL [Concomitant]
  10. METAMUCIL [Concomitant]
  11. NEXIUM [Concomitant]

REACTIONS (3)
  - EYE IRRITATION [None]
  - HAIR TEXTURE ABNORMAL [None]
  - OCULAR HYPERAEMIA [None]
